FAERS Safety Report 7383467-9 (Version None)
Quarter: 2011Q1

REPORT INFORMATION
  Report Type: 
  Country: None (occurrence: None)
  Receive Date: 20110330
  Receipt Date: 20110317
  Transmission Date: 20110831
  Serious: Yes (Other)
  Sender: FDA-Public Use
  Company Number: US-PFIZER INC-2011069002

PATIENT
  Age: 19 Year
  Sex: Female

DRUGS (2)
  1. GEODON [Suspect]
     Dosage: TOTAL DOSE OF 120MG
  2. GEODON [Suspect]
     Dosage: 80 MG, 2X/DAY
     Route: 048

REACTIONS (2)
  - CARDIAC DISORDER [None]
  - ELECTROCARDIOGRAM QT PROLONGED [None]
